FAERS Safety Report 7152808-X (Version None)
Quarter: 2010Q4

REPORT INFORMATION
  Report Type: 
  Country: None (occurrence: None)
  Receive Date: 20101213
  Receipt Date: 20101130
  Transmission Date: 20110411
  Serious: Yes (Hospitalization)
  Sender: FDA-Public Use
  Company Number: PHHY2010DE81444

PATIENT
  Age: 78 Year
  Sex: Male

DRUGS (7)
  1. ZOMETA [Suspect]
     Route: 042
  2. RAMIPRIL [Concomitant]
  3. REPAGLINIDE [Concomitant]
  4. METOPROLOL [Concomitant]
  5. ASS 100 [Concomitant]
  6. NITOMAN [Concomitant]
  7. SIMVASTATIN [Concomitant]

REACTIONS (2)
  - JAW OPERATION [None]
  - OSTEONECROSIS OF JAW [None]
